FAERS Safety Report 6719710-6 (Version None)
Quarter: 2010Q2

REPORT INFORMATION
  Report Type: 
  Country: None (occurrence: None)
  Receive Date: 20100511
  Receipt Date: 20100427
  Transmission Date: 20101027
  Serious: Yes (Other)
  Sender: FDA-Public Use
  Company Number: PHHY2010GB24666

PATIENT
  Sex: Female

DRUGS (2)
  1. ZOLEDRONATE [Suspect]
     Indication: OSTEOPOROSIS
     Dosage: 5 MG
     Dates: start: 20091118
  2. CALCICHEW D3 [Concomitant]
     Dosage: UNK
     Route: 048
     Dates: start: 20091118

REACTIONS (7)
  - ABDOMINAL PAIN [None]
  - C-REACTIVE PROTEIN INCREASED [None]
  - HENOCH-SCHONLEIN PURPURA [None]
  - HERPES ZOSTER [None]
  - NAUSEA [None]
  - RASH [None]
  - RECTAL HAEMORRHAGE [None]
